FAERS Safety Report 6748538-6 (Version None)
Quarter: 2010Q2

REPORT INFORMATION
  Report Type: 
  Country: None (occurrence: None)
  Receive Date: 20100601
  Receipt Date: 20100524
  Transmission Date: 20101027
  Serious: Yes (Hospitalization)
  Sender: FDA-Public Use
  Company Number: US-JNJFOC-20100509673

PATIENT
  Sex: Female
  Weight: 72.58 kg

DRUGS (15)
  1. FENTANYL CITRATE [Suspect]
     Indication: FIBROMYALGIA
     Route: 062
  2. FENTANYL CITRATE [Suspect]
     Indication: BACK PAIN
     Route: 062
  3. FENTANYL CITRATE [Suspect]
     Indication: INTERVERTEBRAL DISC DEGENERATION
     Route: 062
  4. FENTANYL CITRATE [Suspect]
     Route: 062
  5. FENTANYL CITRATE [Suspect]
     Route: 062
  6. FENTANYL CITRATE [Suspect]
     Route: 062
  7. FENTANYL CITRATE [Suspect]
     Route: 062
  8. FENTANYL CITRATE [Suspect]
     Route: 062
  9. FENTANYL CITRATE [Suspect]
     Route: 062
  10. XANAX [Concomitant]
     Indication: PANIC ATTACK
     Route: 048
  11. RANITIDINE [Concomitant]
     Indication: GASTRIC DISORDER
     Route: 048
  12. PREMARIN [Concomitant]
     Indication: HORMONE REPLACEMENT THERAPY
     Route: 048
  13. LEXAPRO [Concomitant]
     Indication: DEPRESSION
     Route: 048
  14. UNKNOWN MEDICATION [Concomitant]
     Indication: MIGRAINE
     Route: 048
  15. LEVOTHYROXINE SODIUM [Concomitant]
     Indication: THYROID DISORDER
     Route: 048

REACTIONS (15)
  - BREAKTHROUGH PAIN [None]
  - COLD SWEAT [None]
  - DECREASED APPETITE [None]
  - DRUG EFFECT INCREASED [None]
  - DRY MOUTH [None]
  - FAECAL INCONTINENCE [None]
  - FEELING ABNORMAL [None]
  - HOT FLUSH [None]
  - INSOMNIA [None]
  - INTENTIONAL SELF-INJURY [None]
  - INTERVERTEBRAL DISC INJURY [None]
  - STRESS [None]
  - URINARY INCONTINENCE [None]
  - WEIGHT DECREASED [None]
  - WITHDRAWAL SYNDROME [None]
